FAERS Safety Report 19508932 (Version 4)
Quarter: 2021Q3

REPORT INFORMATION
  Report Type: Spontaneous
  Country: CA (occurrence: CA)
  Receive Date: 20210709
  Receipt Date: 20210831
  Transmission Date: 20211014
  Serious: Yes (Other)
  Sender: FDA-Public Use
  Company Number: CA-CELLTRION INC.-2019CA019110

PATIENT

DRUGS (27)
  1. INFLECTRA [Suspect]
     Active Substance: INFLIXIMAB-DYYB
     Dosage: 350 MG, AT 0, 1, 4 WEEKS, THEN EVERY 8 WEEKS
     Route: 042
     Dates: start: 20210628
  2. METHOTREXATE. [Concomitant]
     Active Substance: METHOTREXATE
     Dosage: 12.5 MG, WEEKLY
     Dates: start: 20190212
  3. INFLECTRA [Suspect]
     Active Substance: INFLIXIMAB-DYYB
     Dosage: 350 MG, AT 0, 1, 4 WEEKS, THEN EVERY 8 WEEKS
     Route: 042
     Dates: start: 20191016
  4. INFLECTRA [Suspect]
     Active Substance: INFLIXIMAB-DYYB
     Dosage: 350 MG, AT 0, 1, 4 WEEKS, THEN EVERY 8 WEEKS
     Route: 042
     Dates: start: 20200722
  5. INFLECTRA [Suspect]
     Active Substance: INFLIXIMAB-DYYB
     Dosage: 350 MG, AT 0, 1, 4 WEEKS, THEN EVERY 8 WEEKS
     Route: 042
     Dates: start: 20190214
  6. INFLECTRA [Suspect]
     Active Substance: INFLIXIMAB-DYYB
     Dosage: 350 MG, AT 0, 1, 4 WEEKS, THEN EVERY 8 WEEKS
     Route: 042
     Dates: start: 20200527
  7. INFLECTRA [Suspect]
     Active Substance: INFLIXIMAB-DYYB
     Dosage: 350 MG, AT 0, 1, 4 WEEKS, THEN EVERY 8 WEEKS
     Route: 042
     Dates: start: 20190821
  8. PREDNISONE TEVA [Concomitant]
     Active Substance: PREDNISONE
     Dosage: (DECREASING DOSE)
     Dates: start: 201902
  9. INFLECTRA [Suspect]
     Active Substance: INFLIXIMAB-DYYB
     Dosage: 350 MG, (Q 0, 1, 4 WEEKS, THEN EVERY 8 WEEKS)
     Route: 042
     Dates: start: 20190626
  10. INFLECTRA [Suspect]
     Active Substance: INFLIXIMAB-DYYB
     Dosage: 350 MG, AT 0, 1, 4 WEEKS, THEN EVERY 8 WEEKS
     Route: 042
     Dates: start: 20190820
  11. INFLECTRA [Suspect]
     Active Substance: INFLIXIMAB-DYYB
     Dosage: 350 MG, AT 0, 1, 4 WEEKS, THEN EVERY 8 WEEKS
     Route: 042
     Dates: start: 20200916
  12. INFLECTRA [Suspect]
     Active Substance: INFLIXIMAB-DYYB
     Dosage: 350 MG, AT 0, 1, 4 WEEKS, THEN EVERY 8 WEEKS
     Route: 042
     Dates: start: 20201111
  13. INFLECTRA [Suspect]
     Active Substance: INFLIXIMAB-DYYB
     Dosage: 350 MG, AT 0, 1, 4 WEEKS, THEN EVERY 8 WEEKS
     Route: 042
     Dates: start: 20210818
  14. APO?SULFATRIM [Concomitant]
     Active Substance: SULFAMETHOXAZOLE\TRIMETHOPRIM
     Dosage: UNK
     Dates: start: 20190212
  15. INFLECTRA [Suspect]
     Active Substance: INFLIXIMAB-DYYB
     Indication: COLITIS ULCERATIVE
     Dosage: 350 MG, AT 0, 1, 4 WEEKS, THEN EVERY 8 WEEKS
     Route: 042
     Dates: start: 20190208
  16. INFLECTRA [Suspect]
     Active Substance: INFLIXIMAB-DYYB
     Dosage: 350 MG, AT 0, 1, 4 WEEKS, THEN EVERY 8 WEEKS
     Route: 042
     Dates: start: 20200205
  17. INFLECTRA [Suspect]
     Active Substance: INFLIXIMAB-DYYB
     Dosage: 350 MG, AT 0, 1, 4 WEEKS, THEN EVERY 8 WEEKS
     Route: 042
     Dates: start: 20210106
  18. INFLECTRA [Suspect]
     Active Substance: INFLIXIMAB-DYYB
     Dosage: 350 MG, AT 0, 1, 4 WEEKS, THEN EVERY 8 WEEKS
     Route: 042
     Dates: start: 20210429
  19. JAMP?CALCIUM + VITAMIN D [Concomitant]
     Dosage: UNK
     Dates: start: 20190212
  20. INFLECTRA [Suspect]
     Active Substance: INFLIXIMAB-DYYB
     Dosage: 350 MG, AT 0, 1, 4 WEEKS, THEN EVERY 8 WEEKS
     Route: 042
     Dates: start: 20210106
  21. INFLECTRA [Suspect]
     Active Substance: INFLIXIMAB-DYYB
     Dosage: 350 MG, AT 0, 1, 4 WEEKS, THEN EVERY 8 WEEKS
     Route: 042
     Dates: start: 20210303
  22. JAMP FOLIC ACID [Concomitant]
     Dosage: UNK
     Dates: start: 20190212
  23. PMS RISEDRONATE [Concomitant]
     Dosage: UNK
     Dates: start: 20190212
  24. PREDNISONE TEVA [Concomitant]
     Active Substance: PREDNISONE
     Dosage: (DECREASING DOSE)
     Dates: start: 20190212
  25. INFLECTRA [Suspect]
     Active Substance: INFLIXIMAB-DYYB
     Dosage: 350 MG, AT 0, 1, 4 WEEKS, THEN EVERY 8 WEEKS
     Route: 042
     Dates: start: 20190305
  26. INFLECTRA [Suspect]
     Active Substance: INFLIXIMAB-DYYB
     Dosage: 350 MG, (Q 0, 1, 4 WEEKS, THEN EVERY 8 WEEKS)
     Route: 042
     Dates: start: 20190430
  27. INFLECTRA [Suspect]
     Active Substance: INFLIXIMAB-DYYB
     Dosage: 350 MG, AT 0, 1, 4 WEEKS, THEN EVERY 8 WEEKS
     Route: 042
     Dates: start: 20200401

REACTIONS (10)
  - Weight increased [Not Recovered/Not Resolved]
  - Visual impairment [Not Recovered/Not Resolved]
  - Off label use [Unknown]
  - Off label use [Unknown]
  - Blood pressure diastolic increased [Unknown]
  - Foreign body in eye [Unknown]
  - Condition aggravated [Unknown]
  - Weight decreased [Unknown]
  - Intentional product use issue [Unknown]
  - Condition aggravated [Not Recovered/Not Resolved]

NARRATIVE: CASE EVENT DATE: 20190208
